FAERS Safety Report 22065737 (Version 2)
Quarter: 2024Q3

REPORT INFORMATION
  Report Type: Report from Study
  Country: US (occurrence: US)
  Receive Date: 20230306
  Receipt Date: 20240812
  Transmission Date: 20241016
  Serious: Yes (Death, Other)
  Sender: AMNEAL
  Company Number: US-AMNEAL PHARMACEUTICALS-2023-AMRX-00231

PATIENT
  Sex: Female

DRUGS (5)
  1. CARBIDOPA\LEVODOPA [Suspect]
     Active Substance: CARBIDOPA\LEVODOPA
     Indication: Parkinson^s disease
     Dosage: 2 CAPSULES(23.75/95MG), QID
     Route: 048
  2. CARBIDOPA\LEVODOPA [Suspect]
     Active Substance: CARBIDOPA\LEVODOPA
     Dosage: 23.75/95MG, TAKE 3 CAPSULES BY MOUTH 1ST DOSE, THEN TAKE 2 CAPSULES FOR NEXT 3 DOSES, THEN TAKE 2 CA
     Route: 048
     Dates: start: 20230406
  3. CARBIDOPA\LEVODOPA [Suspect]
     Active Substance: CARBIDOPA\LEVODOPA
     Dosage: 23.75/95 MG 1ST DOSE-TAKE 3 CAPSULES ,2ND DOSE-2 CAPSULES,3RD DOSE-2 CAPSULES,4TH DOSE-2 CAPSULES,5T
     Route: 048
  4. CARBIDOPA\LEVODOPA [Suspect]
     Active Substance: CARBIDOPA\LEVODOPA
     Dosage: 23.75/95 MG 1ST DOSE-TAKE 3 CAPSULES ,2ND DOSE-2 CAPSULES,3RD DOSE-3 CAPSULES,4TH DOSE-2 CAPSULES
     Route: 048
  5. CARBIDOPA\LEVODOPA [Suspect]
     Active Substance: CARBIDOPA\LEVODOPA
     Dosage: (23.75/95 MG) TAKE 03 CAPSULES BY MOUTH AT 8AM, THEN TAKE 2 CAPSULES AT 1PM, THEN TAKE 03 CAPSULES A
     Route: 048

REACTIONS (6)
  - Volvulus [Fatal]
  - Infection [Fatal]
  - Pneumonia [Unknown]
  - Fall [Recovering/Resolving]
  - COVID-19 [Unknown]
  - Dyskinesia [Recovered/Resolved]
